FAERS Safety Report 11678882 (Version 2)
Quarter: 2015Q4

REPORT INFORMATION
  Report Type: Spontaneous
  Country: CN (occurrence: CN)
  Receive Date: 20151028
  Receipt Date: 20151028
  Transmission Date: 20160304
  Serious: Yes (Hospitalization)
  Sender: FDA-Public Use
  Company Number: CN-CONCORDIA PHARMACEUTICALS INC.-CO-PL-CN-2015-336

PATIENT
  Age: 15 Year
  Sex: Female

DRUGS (2)
  1. CYCLOPHOSPHAMIDE. [Suspect]
     Active Substance: CYCLOPHOSPHAMIDE
     Indication: HENOCH-SCHONLEIN PURPURA NEPHRITIS
     Route: 065
  2. HYDROXYCHLOROQUINE SULFATE. [Suspect]
     Active Substance: HYDROXYCHLOROQUINE SULFATE
     Indication: HENOCH-SCHONLEIN PURPURA NEPHRITIS
     Route: 065

REACTIONS (2)
  - Nocardiosis [Recovered/Resolved]
  - Product use issue [Recovered/Resolved]
